FAERS Safety Report 7359988-1 (Version None)
Quarter: 2011Q1

REPORT INFORMATION
  Report Type: 
  Country: None (occurrence: None)
  Receive Date: 20110317
  Receipt Date: 20110316
  Transmission Date: 20110831
  Serious: Yes (Other)
  Sender: FDA-Public Use
  Company Number: SE-MERCK-1012SWE00018

PATIENT
  Age: 49 Year
  Sex: Female

DRUGS (2)
  1. FOSAMAX [Suspect]
     Indication: SJOGREN'S SYNDROME
     Route: 048
     Dates: end: 20100606
  2. FOSAMAX [Suspect]
     Indication: SYSTEMIC LUPUS ERYTHEMATOSUS
     Route: 048
     Dates: end: 20100606

REACTIONS (3)
  - FEMUR FRACTURE [None]
  - OFF LABEL USE [None]
  - PATHOLOGICAL FRACTURE [None]
